FAERS Safety Report 19719477 (Version 1)
Quarter: 2021Q3

REPORT INFORMATION
  Report Type: Spontaneous
  Country: US (occurrence: US)
  Receive Date: 20210819
  Receipt Date: 20210819
  Transmission Date: 20211014
  Serious: Yes (Disabling)
  Sender: FDA-Public Use
  Company Number: None

PATIENT
  Age: 31 Year
  Sex: Female
  Weight: 45.36 kg

DRUGS (13)
  1. PULMICORT TURBUHALER [Concomitant]
     Active Substance: BUDESONIDE
  2. AN AFRANIL [Concomitant]
  3. ASPIRIN 81 [Concomitant]
     Active Substance: ASPIRIN
  4. PROTON IX [Concomitant]
  5. TRAMADOL. [Concomitant]
     Active Substance: TRAMADOL
  6. KEPPRA [Concomitant]
     Active Substance: LEVETIRACETAM
  7. SYMBICORT [Concomitant]
     Active Substance: BUDESONIDE\FORMOTEROL FUMARATE DIHYDRATE
  8. KLONOPIN [Concomitant]
     Active Substance: CLONAZEPAM
  9. SINGULAIR [Concomitant]
     Active Substance: MONTELUKAST SODIUM
  10. HYD ROZYZIN E [Concomitant]
  11. STELARA [Suspect]
     Active Substance: USTEKINUMAB
     Dosage: ?          OTHER FREQUENCY:CADA 8 SEMANAS;?
     Route: 058
  12. ALBUTEROL SUFATE [Concomitant]
     Active Substance: ALBUTEROL SULFATE
  13. ATROVENT [Concomitant]
     Active Substance: IPRATROPIUM BROMIDE

REACTIONS (1)
  - Bone marrow disorder [None]

NARRATIVE: CASE EVENT DATE: 20210818
